FAERS Safety Report 6717870-4 (Version None)
Quarter: 2010Q2

REPORT INFORMATION
  Report Type: 
  Country: None (occurrence: None)
  Receive Date: 20100507
  Receipt Date: 20100507
  Transmission Date: 20101027
  Serious: Yes (Hospitalization)
  Sender: FDA-Public Use
  Company Number: None

PATIENT
  Sex: Female
  Weight: 112 kg

DRUGS (2)
  1. CARBOPLATIN [Suspect]
     Dosage: 503 MG
     Dates: end: 20100302
  2. TAXOL [Suspect]
     Dosage: 350 MG
     Dates: end: 20100302

REACTIONS (4)
  - DEHYDRATION [None]
  - DIARRHOEA [None]
  - ILEUS [None]
  - PYREXIA [None]
